FAERS Safety Report 15755121 (Version 1)
Quarter: 2018Q4

REPORT INFORMATION
  Report Type: Spontaneous
  Country: US (occurrence: US)
  Receive Date: 20181224
  Receipt Date: 20181224
  Transmission Date: 20190205
  Serious: Yes (Hospitalization)
  Sender: FDA-Public Use
  Company Number: US-ROCHE-2231801

PATIENT
  Sex: Female

DRUGS (3)
  1. OCREVUS [Suspect]
     Active Substance: OCRELIZUMAB
     Dosage: SECOND PART OF FIRST DOSE
     Route: 065
     Dates: start: 20171110
  2. OCREVUS [Suspect]
     Active Substance: OCRELIZUMAB
     Route: 065
     Dates: start: 20180629
  3. OCREVUS [Suspect]
     Active Substance: OCRELIZUMAB
     Indication: RELAPSING MULTIPLE SCLEROSIS
     Dosage: FIRST PART OF FIRST DOSE
     Route: 065
     Dates: start: 20171027

REACTIONS (4)
  - Cholecystitis infective [Unknown]
  - Intestinal mass [Unknown]
  - Complicated appendicitis [Unknown]
  - Urticaria [Unknown]
